FAERS Safety Report 7823750-3 (Version None)
Quarter: 2011Q4

REPORT INFORMATION
  Report Type: 
  Country: None (occurrence: None)
  Receive Date: 20111019
  Receipt Date: 20111013
  Transmission Date: 20120403
  Serious: No
  Sender: FDA-Public Use
  Company Number: US-PFIZER INC-2011245281

PATIENT
  Sex: Male

DRUGS (2)
  1. SUTENT [Suspect]
     Indication: PLASMACYTOMA
     Dosage: 50 MG, 1X/DAY
     Dates: start: 20110902
  2. SUTENT [Suspect]
     Indication: NEOPLASM MALIGNANT

REACTIONS (2)
  - MOUTH ULCERATION [None]
  - RASH [None]
